FAERS Safety Report 9247641 (Version 2)
Quarter: 2013Q4

REPORT INFORMATION
  Report Type: Report from Study
  Country: LB (occurrence: LB)
  Receive Date: 20130423
  Receipt Date: 20131206
  Transmission Date: 20140711
  Serious: Yes (Death, Hospitalization)
  Sender: FDA-Public Use
  Company Number: PHHO2012LB003138

PATIENT
  Age: 76 Year
  Sex: Male
  Weight: 57 kg

DRUGS (3)
  1. EVEROLIMUS [Suspect]
     Indication: METASTATIC RENAL CELL CARCINOMA
     Dosage: 10 MG, QD
     Route: 048
     Dates: start: 20110624, end: 20120213
  2. EPOETIN ALFA [Concomitant]
     Indication: ANAEMIA
     Dosage: 1000 IU, QW2
     Route: 058
     Dates: start: 20110124, end: 20120130
  3. EPOETIN ALFA [Concomitant]
     Dosage: 1000 IU, QW3
     Route: 058
     Dates: start: 20120131, end: 20120210

REACTIONS (1)
  - Gastrointestinal haemorrhage [Fatal]
